FAERS Safety Report 5938040-3 (Version None)
Quarter: 2008Q4

REPORT INFORMATION
  Report Type: 
  Country: None (occurrence: None)
  Receive Date: 20081031
  Receipt Date: 20081023
  Transmission Date: 20090506
  Serious: Yes (Other)
  Sender: FDA-Public Use
  Company Number: JP-PFIZER INC-2008088465

PATIENT
  Age: 60 Year
  Sex: Male

DRUGS (3)
  1. NORVASC [Suspect]
     Indication: HYPERTENSION
     Dates: start: 20080601
  2. SALOBEL [Suspect]
     Route: 048
  3. THEO-DUR [Concomitant]
     Route: 048

REACTIONS (2)
  - SKIN ULCER [None]
  - STASIS DERMATITIS [None]
